FAERS Safety Report 6517928-9 (Version None)
Quarter: 2009Q4

REPORT INFORMATION
  Report Type: 
  Country: None (occurrence: None)
  Receive Date: 20091223
  Receipt Date: 20091223
  Transmission Date: 20100525
  Serious: No
  Sender: FDA-Public Use
  Company Number: None

PATIENT
  Age: 70 Year
  Sex: Female
  Weight: 96.1626 kg

DRUGS (1)
  1. OXYCODONE ER 80MG MALLINCKRODT [Suspect]
     Indication: BACK PAIN
     Dosage: ONE TABLET TWICE DAILY PO
     Route: 048
     Dates: start: 20091119, end: 20091218

REACTIONS (7)
  - ANXIETY [None]
  - BALANCE DISORDER [None]
  - HYPERHIDROSIS [None]
  - MALAISE [None]
  - POOR QUALITY SLEEP [None]
  - PRODUCT SUBSTITUTION ISSUE [None]
  - TREMOR [None]
